FAERS Safety Report 5913654-5 (Version None)
Quarter: 2008Q4

REPORT INFORMATION
  Report Type: 
  Country: None (occurrence: None)
  Receive Date: 20081009
  Receipt Date: 20081001
  Transmission Date: 20090506
  Serious: Yes (Other)
  Sender: FDA-Public Use
  Company Number: DE-AMGEN-UK310805

PATIENT
  Sex: Female
  Weight: 71 kg

DRUGS (1)
  1. NEULASTA [Suspect]
     Indication: PRE-EXISTING DISEASE
     Route: 058
     Dates: start: 20080728

REACTIONS (1)
  - FEBRILE NEUTROPENIA [None]
